FAERS Safety Report 9289408 (Version 1)
Quarter: 2013Q2

REPORT INFORMATION
  Report Type: Spontaneous
  Country: US (occurrence: US)
  Receive Date: 20130514
  Receipt Date: 20130514
  Transmission Date: 20140414
  Serious: Yes (Disabling, Other)
  Sender: FDA-Public Use
  Company Number: US-GILEAD-2013-0075014

PATIENT
  Age: 41 Year
  Sex: Female

DRUGS (12)
  1. STRIBILD [Suspect]
     Indication: PRODUCT USED FOR UNKNOWN INDICATION
     Dosage: UNK
  2. TRUVADA [Suspect]
     Indication: PRODUCT USED FOR UNKNOWN INDICATION
     Dosage: UNK
     Dates: start: 2012
  3. TRUVADA [Suspect]
     Dosage: UNK
  4. DARUNAVIR WITH RITONAVIR [Suspect]
     Indication: PRODUCT USED FOR UNKNOWN INDICATION
     Dosage: UNK
     Dates: start: 2012
  5. DARUNAVIR WITH RITONAVIR [Suspect]
     Dosage: UNK
  6. GABAPENTIN [Concomitant]
  7. OMEPRAZOLE [Concomitant]
  8. MARINOL                            /00003301/ [Concomitant]
  9. NAPROXEN [Concomitant]
  10. REMERON [Concomitant]
     Indication: DEPRESSION
  11. SYMBICORT [Concomitant]
     Indication: ASTHMA
  12. ZOFRAN                             /00955301/ [Concomitant]

REACTIONS (7)
  - Neuropathy peripheral [Recovering/Resolving]
  - Arthritis [Recovering/Resolving]
  - Abasia [Unknown]
  - Pain in extremity [Recovering/Resolving]
  - Pain in extremity [Recovering/Resolving]
  - Mitochondrial toxicity [None]
  - Arthralgia [None]
